FAERS Safety Report 8652892 (Version 3)
Quarter: 2013Q1

REPORT INFORMATION
  Report Type: Spontaneous
  Country: US (occurrence: US)
  Receive Date: 20120706
  Receipt Date: 20130129
  Transmission Date: 20140127
  Serious: Yes (Hospitalization)
  Sender: FDA-Public Use
  Company Number: US-ASTRAZENECA-2011SE48898

PATIENT
  Age: 55 Year
  Sex: Female
  Weight: 48.5 kg

DRUGS (7)
  1. SEROQUEL [Suspect]
     Indication: BIPOLAR DISORDER
     Dosage: DAILY
     Route: 048
     Dates: start: 2010, end: 2010
  2. SEROQUEL [Suspect]
     Indication: BIPOLAR DISORDER
     Route: 048
  3. NEURONTINE [Concomitant]
     Indication: FIBROMYALGIA
     Route: 048
  4. PLOMITIN [Concomitant]
     Indication: FIBROMYALGIA
  5. NORVAS [Concomitant]
     Indication: BLOOD PRESSURE
  6. VICODINE [Concomitant]
     Indication: PAIN
  7. CLONIPINE [Concomitant]
     Route: 048

REACTIONS (12)
  - Loss of consciousness [Unknown]
  - Hypertension [Unknown]
  - Disturbance in attention [Unknown]
  - Insomnia [Unknown]
  - Malaise [Unknown]
  - Impaired work ability [Unknown]
  - Somnolence [Recovered/Resolved]
  - Lethargy [Recovered/Resolved]
  - Dyspnoea [Unknown]
  - Tremor [Unknown]
  - Intentional drug misuse [Unknown]
  - Drug dose omission [Unknown]
